FAERS Safety Report 19514469 (Version 1)
Quarter: 2021Q3

REPORT INFORMATION
  Report Type: Spontaneous
  Country: US (occurrence: US)
  Receive Date: 20210709
  Receipt Date: 20210709
  Transmission Date: 20211014
  Serious: Yes (Death, Life-Threatening, Hospitalization, Other)
  Sender: FDA-Public Use
  Company Number: US-SA-2021SA196929

PATIENT
  Age: 59 Year
  Sex: Male

DRUGS (4)
  1. PREDNISONE. [Suspect]
     Active Substance: PREDNISONE
     Indication: RADICULAR PAIN
  2. PREDNISONE. [Suspect]
     Active Substance: PREDNISONE
     Indication: BACK PAIN
     Dosage: UNK
     Route: 048
  3. DEXAMETHASONE SALT NOT SPECIFIED [Suspect]
     Active Substance: DEXAMETHASONE
  4. HYDROCORTISONE SALT NOT SPECIFIED [Suspect]
     Active Substance: HYDROCORTISONE
     Indication: PROPHYLAXIS
     Route: 042

REACTIONS (25)
  - Encephalitis california [Fatal]
  - Dysarthria [Fatal]
  - Pain of skin [Fatal]
  - Urinary incontinence [Fatal]
  - Hypochloraemia [Fatal]
  - Mydriasis [Fatal]
  - Scab [Fatal]
  - Rash [Fatal]
  - Incoherent [Fatal]
  - Blister [Fatal]
  - Skin haemorrhage [Fatal]
  - Escherichia urinary tract infection [Unknown]
  - Acute kidney injury [Unknown]
  - Confusional state [Fatal]
  - Fall [Fatal]
  - Hyponatraemia [Fatal]
  - Varicella zoster virus infection [Fatal]
  - Skin lesion [Fatal]
  - Viral vasculitis [Fatal]
  - Subarachnoid haemorrhage [Fatal]
  - Skin abrasion [Fatal]
  - Agitation [Fatal]
  - Hydronephrosis [Unknown]
  - Mental status changes [Fatal]
  - Encephalitis viral [Fatal]
